FAERS Safety Report 7486583-6 (Version None)
Quarter: 2011Q2

REPORT INFORMATION
  Report Type: 
  Country: None (occurrence: None)
  Receive Date: 20110516
  Receipt Date: 20110516
  Transmission Date: 20111010
  Serious: Yes (Hospitalization, Other)
  Sender: FDA-Public Use
  Company Number: None

PATIENT
  Age: 80 Year
  Sex: Female
  Weight: 72.5755 kg

DRUGS (2)
  1. FOSAMAX [Suspect]
     Indication: OSTEOPOROSIS
     Dosage: 70MG ONE PER WEEK PO
     Route: 048
     Dates: start: 20000101, end: 20080721
  2. ALENDRONATE SODIUM [Suspect]
     Indication: OSTEOPOROSIS
     Dosage: 70MG ONE PER WEEK PO
     Route: 048
     Dates: start: 20080720, end: 20110110

REACTIONS (3)
  - FEMUR FRACTURE [None]
  - THROMBOSIS [None]
  - PATHOLOGICAL FRACTURE [None]
